FAERS Safety Report 6120951-X (Version None)
Quarter: 2009Q1

REPORT INFORMATION
  Report Type: 
  Country: None (occurrence: None)
  Receive Date: 20090312
  Receipt Date: 20090312
  Transmission Date: 20090719
  Serious: No
  Sender: FDA-Public Use
  Company Number: None

PATIENT
  Age: 45 Year
  Sex: Female
  Weight: 61.6892 kg

DRUGS (1)
  1. NEUTROGENA ACNE STRESS CONTROL TRIPLE ACTION TONER [Suspect]
     Indication: ACNE
     Dosage: ONE APPLICATION
     Dates: start: 20090306, end: 20090306

REACTIONS (1)
  - DRUG HYPERSENSITIVITY [None]
